FAERS Safety Report 9684770 (Version 2)
Quarter: 2013Q4

REPORT INFORMATION
  Report Type: Spontaneous
  Country: CA (occurrence: CA)
  Receive Date: 20131112
  Receipt Date: 20131112
  Transmission Date: 20140711
  Serious: Yes (Hospitalization, Congenital Anomaly, Other)
  Sender: FDA-Public Use
  Company Number: CA-BAXTER-2013BAX043653

PATIENT
  Age: 72 Year
  Sex: Female

DRUGS (3)
  1. DIANEAL PD4 SOLUTION WITH 1.5% DEXTROSE AND 2.5 MEQ/L CALCIUM [Suspect]
     Indication: PERITONEAL DIALYSIS
     Route: 033
     Dates: start: 201208
  2. DIANEAL PD4 SOLUTION WITH 2.5% DEXTROSE AND 2.5 MEQ/L CALCIUM [Suspect]
     Indication: PERITONEAL DIALYSIS
     Route: 033
     Dates: start: 201208
  3. DIANEAL PD4 SOLUTION WITH 4.25% DEXTROSE AND 2.5 MEQ/L CALCIUM [Suspect]
     Indication: PERITONEAL DIALYSIS
     Route: 033
     Dates: start: 201208

REACTIONS (11)
  - Multimorbidity [Unknown]
  - Ultrafiltration failure [Unknown]
  - Tremor [Unknown]
  - Movement disorder [Unknown]
  - Grip strength decreased [Unknown]
  - Chronic obstructive pulmonary disease [Unknown]
  - Neuralgia [Unknown]
  - Transient ischaemic attack [Unknown]
  - Infection [Unknown]
  - Peritoneal dialysis complication [Unknown]
  - Hernia [Unknown]
